FAERS Safety Report 8847609 (Version 1)
Quarter: 2012Q4

REPORT INFORMATION
  Report Type: 
  Country: JP (occurrence: JP)
  Receive Date: 20121018
  Receipt Date: 20121018
  Transmission Date: 20130627
  Serious: Yes (Other)
  Sender: FDA-Public Use
  Company Number: PHHY2012JP091616

PATIENT
  Age: 77 Year
  Sex: Female

DRUGS (4)
  1. ACETYLSALICYLIC ACID [Suspect]
  2. ETIZOLAM [Concomitant]
  3. BARNIDIPINE HYDROCHLORIDE [Concomitant]
  4. FLUVOXAMINE MALEATE [Concomitant]

REACTIONS (2)
  - Colitis microscopic [Recovered/Resolved]
  - Diarrhoea [Recovered/Resolved]
